FAERS Safety Report 8056782-3 (Version None)
Quarter: 2012Q1

REPORT INFORMATION
  Report Type: 
  Country: None (occurrence: None)
  Receive Date: 20120119
  Receipt Date: 20120117
  Transmission Date: 20120608
  Serious: Yes (Other)
  Sender: FDA-Public Use
  Company Number: US-GLAXOSMITHKLINE-A0946007A

PATIENT
  Age: 30 Year
  Sex: Female

DRUGS (3)
  1. UNSPECIFIED MEDICATIONS [Concomitant]
  2. VERAMYST [Suspect]
     Indication: MULTIPLE ALLERGIES
     Dosage: 4SPR PER DAY
     Route: 045
     Dates: start: 20080101
  3. VERAMYST [Suspect]
     Dosage: 4SPR TWICE PER DAY
     Route: 045

REACTIONS (5)
  - DRUG INEFFECTIVE [None]
  - OVERDOSE [None]
  - CHOKING [None]
  - NASAL DISCOMFORT [None]
  - PRODUCT QUALITY ISSUE [None]
